FAERS Safety Report 10154034 (Version 1)
Quarter: 2014Q2

REPORT INFORMATION
  Report Type: Spontaneous
  Country: GB (occurrence: GB)
  Receive Date: 20140506
  Receipt Date: 20140506
  Transmission Date: 20141212
  Serious: Yes (Other)
  Sender: FDA-Public Use
  Company Number: GB-ROCHE-1392090

PATIENT
  Age: 30 Year
  Sex: Male

DRUGS (3)
  1. VEMURAFENIB [Suspect]
     Indication: METASTATIC MALIGNANT MELANOMA
     Route: 048
  2. VEMURAFENIB [Suspect]
     Indication: HERPES ZOSTER
  3. VEMURAFENIB [Suspect]
     Indication: SKIN LESION

REACTIONS (1)
  - Metastases to meninges [Unknown]
